FAERS Safety Report 4358512-5 (Version None)
Quarter: 2004Q2

REPORT INFORMATION
  Report Type: 
  Country: None (occurrence: None)
  Receive Date: 20040514
  Receipt Date: 20040430
  Transmission Date: 20050107
  Serious: Yes (Other)
  Sender: FDA-Public Use
  Company Number: GB-GLAXOSMITHKLINE-B0331741A

PATIENT
  Weight: 15 kg

DRUGS (4)
  1. AMOXIL [Suspect]
     Dosage: 750MG THREE TIMES PER DAY
  2. CALCIUM-SANDOZ [Concomitant]
  3. CALCIUM CARBONATE [Concomitant]
  4. CLINDAMYCIN HCL [Concomitant]
     Route: 042

REACTIONS (1)
  - NEUROTOXICITY [None]
